FAERS Safety Report 18000058 (Version 1)
Quarter: 2020Q3

REPORT INFORMATION
  Report Type: Spontaneous
  Country: US (occurrence: US)
  Receive Date: 20200709
  Receipt Date: 20200709
  Transmission Date: 20201103
  Serious: Yes (Hospitalization)
  Sender: FDA-Public Use
  Company Number: None

PATIENT
  Age: 51 Year
  Sex: Male
  Weight: 67 kg

DRUGS (6)
  1. INSULIN ASPART [Concomitant]
     Active Substance: INSULIN ASPART
  2. PITAVASTATIN. [Concomitant]
     Active Substance: PITAVASTATIN CALCIUM
  3. INSULIN GLARGINE [Concomitant]
     Active Substance: INSULIN GLARGINE
  4. SEMAGLUTIDE [Suspect]
     Active Substance: SEMAGLUTIDE
     Indication: TYPE 2 DIABETES MELLITUS
     Route: 048
  5. LOSARTAN. [Concomitant]
     Active Substance: LOSARTAN
  6. IBUPROFEN. [Concomitant]
     Active Substance: IBUPROFEN

REACTIONS (16)
  - Vomiting [None]
  - Neutrophil count increased [None]
  - Jaundice [None]
  - Nausea [None]
  - Aspartate aminotransferase increased [None]
  - Asthenia [None]
  - Diarrhoea [None]
  - Dry mouth [None]
  - Alanine aminotransferase increased [None]
  - Abdominal discomfort [None]
  - White blood cell count increased [None]
  - Blood bilirubin increased [None]
  - Blood alkaline phosphatase increased [None]
  - Cholestasis [None]
  - Portal tract inflammation [None]
  - Ocular icterus [None]

NARRATIVE: CASE EVENT DATE: 20200617
